FAERS Safety Report 6539787-0 (Version None)
Quarter: 2010Q1

REPORT INFORMATION
  Report Type: 
  Country: None (occurrence: None)
  Receive Date: 20100115
  Receipt Date: 20100112
  Transmission Date: 20100710
  Serious: Yes (Other)
  Sender: FDA-Public Use
  Company Number: DE-PFIZER INC-2010004297

PATIENT
  Age: 80 Year
  Sex: Male

DRUGS (2)
  1. VIAGRA [Suspect]
     Dosage: 50 MG, APPR. EVERY 14 DAYS
     Route: 048
     Dates: start: 20060101
  2. COSOPT [Concomitant]
     Indication: INTRAOCULAR PRESSURE INCREASED
     Dosage: UNK, BOTH EYES
     Route: 061

REACTIONS (1)
  - VISUAL ACUITY REDUCED [None]
